FAERS Safety Report 6003435-9 (Version None)
Quarter: 2008Q4

REPORT INFORMATION
  Report Type: 
  Country: None (occurrence: None)
  Receive Date: 20081215
  Receipt Date: 20081215
  Transmission Date: 20090506
  Serious: No
  Sender: FDA-Public Use
  Company Number: None

PATIENT
  Sex: Female
  Weight: 72.5755 kg

DRUGS (1)
  1. CIPROFLOXACIN HCL [Suspect]
     Indication: DIVERTICULITIS
     Dosage: 500 MG TWICE DAILY PO
     Route: 048
     Dates: start: 20080506, end: 20080509

REACTIONS (4)
  - ANXIETY [None]
  - PAIN [None]
  - PAIN IN EXTREMITY [None]
  - TENDON DISORDER [None]
